FAERS Safety Report 5658214-9 (Version None)
Quarter: 2008Q1

REPORT INFORMATION
  Report Type: 
  Country: None (occurrence: None)
  Receive Date: 20080310
  Receipt Date: 20070227
  Transmission Date: 20080703
  Serious: No
  Sender: FDA-Public Use
  Company Number: US-BAYER-200710098BCC

PATIENT
  Age: 80 Year
  Sex: Female
  Weight: 73 kg

DRUGS (10)
  1. ALEVE [Suspect]
     Indication: ARTHRALGIA
     Route: 048
     Dates: start: 20070107
  2. ALEVE [Suspect]
     Dosage: TOTAL DAILY DOSE: 220 MG  UNIT DOSE: 220 MG
     Route: 048
     Dates: start: 20061001, end: 20061201
  3. METOPROLOL TARTRATE [Concomitant]
  4. PREMARIN [Concomitant]
  5. NORVASC [Concomitant]
  6. HYDROCHLOROTHIAZIDE [Concomitant]
  7. GLIPIZIDE [Concomitant]
  8. LORAZEPAM [Concomitant]
  9. ALLEGRA [Concomitant]
  10. LISINOPRIL [Concomitant]

REACTIONS (4)
  - BLOOD GLUCOSE INCREASED [None]
  - HYPERSENSITIVITY [None]
  - PRURITUS [None]
  - RASH [None]
